FAERS Safety Report 4632865-2 (Version None)
Quarter: 2005Q2

REPORT INFORMATION
  Report Type: 
  Country: None (occurrence: None)
  Receive Date: 20050412
  Receipt Date: 20050228
  Transmission Date: 20051028
  Serious: Yes (Hospitalization)
  Sender: FDA-Public Use
  Company Number: PHEH2005US02552

PATIENT
  Age: 33 Year
  Sex: Female
  Weight: 63 kg

DRUGS (3)
  1. BROMERGON (NGX) [Suspect]
     Indication: HYPERPROLACTINAEMIA
     Dosage: 5 MG, BID
     Route: 048
     Dates: start: 20030201, end: 20050218
  2. LEVOXYL [Concomitant]
     Indication: HYPOTHYROIDISM
     Dosage: UNK, QD
     Route: 048
  3. PROZAC [Concomitant]
     Indication: DEPRESSION
     Dosage: 20 MG, QD
     Route: 048

REACTIONS (3)
  - DYSPNOEA [None]
  - LUNG INFILTRATION [None]
  - PNEUMONITIS [None]
